FAERS Safety Report 24666446 (Version 1)
Quarter: 2024Q4

REPORT INFORMATION
  Report Type: Spontaneous
  Country: GB (occurrence: GB)
  Receive Date: 20241126
  Receipt Date: 20241126
  Transmission Date: 20250114
  Serious: Yes (Other)
  Sender: ELI LILLY AND COMPANY
  Company Number: None

PATIENT
  Age: 53 Year
  Sex: Female

DRUGS (3)
  1. MOUNJARO [Interacting]
     Active Substance: TIRZEPATIDE
     Indication: Weight control
     Dosage: 2.5MG
     Dates: start: 20241028
  2. ESTRADIOL [Interacting]
     Active Substance: ESTRADIOL
     Indication: Hormone replacement therapy
     Dosage: UNK UNK, UNKNOWN
     Route: 065
  3. METHOTREXATE [Concomitant]
     Active Substance: METHOTREXATE
     Indication: Psoriasis

REACTIONS (6)
  - Pain [Unknown]
  - Peripheral coldness [Unknown]
  - Pyrexia [Unknown]
  - Hypoglycaemia [Not Recovered/Not Resolved]
  - Fatigue [Unknown]
  - Drug interaction [Unknown]
